FAERS Safety Report 12154503 (Version 1)
Quarter: 2016Q1

REPORT INFORMATION
  Report Type: Spontaneous
  Country: US (occurrence: US)
  Receive Date: 20160307
  Receipt Date: 20160307
  Transmission Date: 20160526
  Serious: No
  Sender: FDA-Public Use
  Company Number: US-009507513-1602USA011459

PATIENT
  Age: 20 Year
  Sex: Female
  Weight: 59.86 kg

DRUGS (3)
  1. MIRTAZAPINE. [Concomitant]
     Active Substance: MIRTAZAPINE
     Indication: NIGHTMARE
  2. NEXPLANON [Suspect]
     Active Substance: ETONOGESTREL
     Indication: CONTRACEPTION
     Dosage: 3 YEAR IMPLANT, IN LEFT ARM
     Route: 059
     Dates: start: 201508
  3. CLOZAPINE. [Concomitant]
     Active Substance: CLOZAPINE
     Indication: ANXIETY

REACTIONS (6)
  - Menorrhagia [Unknown]
  - Panic attack [Unknown]
  - Mood swings [Unknown]
  - Feeling abnormal [Unknown]
  - Anxiety [Unknown]
  - Weight increased [Unknown]

NARRATIVE: CASE EVENT DATE: 201508
